FAERS Safety Report 17345676 (Version 7)
Quarter: 2025Q2

REPORT INFORMATION
  Report Type: Spontaneous
  Country: DE (occurrence: DE)
  Receive Date: 20200129
  Receipt Date: 20250523
  Transmission Date: 20250717
  Serious: Yes (Death, Life-Threatening, Hospitalization, Other)
  Sender: PURDUE
  Company Number: DE-EMA-DD-20200324-SANDEVHP-122251

PATIENT
  Age: 52 Year
  Sex: Female
  Weight: 52 kg

DRUGS (68)
  1. MORPHINE [Suspect]
     Active Substance: MORPHINE
     Indication: Systemic lupus erythematosus
     Route: 065
  2. MORPHINE [Suspect]
     Active Substance: MORPHINE
     Route: 065
  3. MORPHINE [Suspect]
     Active Substance: MORPHINE
     Route: 065
  4. MORPHINE [Suspect]
     Active Substance: MORPHINE
     Route: 065
  5. BELIMUMAB [Suspect]
     Active Substance: BELIMUMAB
     Indication: White blood cell count decreased
     Dosage: 200 MG, WEEKLY (200 MG, WE)
     Route: 058
     Dates: start: 201806, end: 201807
  6. BELIMUMAB [Suspect]
     Active Substance: BELIMUMAB
     Indication: Systemic lupus erythematosus
     Dosage: 10 MG/KG, WEEKLY (10 MG/KG, WE)
     Route: 058
     Dates: start: 201711, end: 201812
  7. BELIMUMAB [Suspect]
     Active Substance: BELIMUMAB
     Dosage: 200 MG, WEEKLY (200 MG, WE)
     Route: 058
     Dates: start: 201708, end: 201904
  8. BELIMUMAB [Suspect]
     Active Substance: BELIMUMAB
     Dosage: 200 MILLIGRAM/KILOGRAM, WEEKLY,200 MG/KG, WEEKLY
     Route: 058
     Dates: start: 201806, end: 201904
  9. BELIMUMAB [Suspect]
     Active Substance: BELIMUMAB
     Dosage: 200 MILLIGRAM/KILOGRAM, WEEKLY,200 MG/KG, WEEKLY
     Route: 058
     Dates: start: 201806, end: 201807
  10. AZATHIOPRINE [Suspect]
     Active Substance: AZATHIOPRINE
     Indication: White blood cell count decreased
     Route: 065
     Dates: start: 201906, end: 201907
  11. AZATHIOPRINE [Suspect]
     Active Substance: AZATHIOPRINE
     Indication: Systemic lupus erythematosus
     Route: 065
     Dates: start: 20100419, end: 201904
  12. AZATHIOPRINE [Suspect]
     Active Substance: AZATHIOPRINE
     Indication: Lymphopenia
     Route: 065
     Dates: start: 1997, end: 2008
  13. PREDNISOLONE [Suspect]
     Active Substance: PREDNISOLONE
     Indication: Systemic lupus erythematosus
     Dosage: 5 MG, DAILY (5 MG, QD)
     Route: 065
     Dates: start: 1988
  14. FLUVASTATIN [Suspect]
     Active Substance: FLUVASTATIN SODIUM
     Indication: Systemic lupus erythematosus
     Route: 065
  15. FLUVASTATIN [Suspect]
     Active Substance: FLUVASTATIN SODIUM
     Route: 065
  16. FLUVASTATIN [Suspect]
     Active Substance: FLUVASTATIN SODIUM
     Route: 065
  17. FLUVASTATIN [Suspect]
     Active Substance: FLUVASTATIN SODIUM
     Route: 065
  18. FLUVASTATIN [Suspect]
     Active Substance: FLUVASTATIN SODIUM
     Route: 065
  19. FLUVASTATIN [Suspect]
     Active Substance: FLUVASTATIN SODIUM
     Route: 065
  20. FLUVASTATIN [Suspect]
     Active Substance: FLUVASTATIN SODIUM
     Route: 065
  21. VALSARTAN [Suspect]
     Active Substance: VALSARTAN
     Indication: Systemic lupus erythematosus
     Route: 065
  22. VALSARTAN [Suspect]
     Active Substance: VALSARTAN
     Dosage: UNK, DAILY (UNK UNK, BID 160 (1-0-1))
     Route: 065
  23. VALSARTAN [Suspect]
     Active Substance: VALSARTAN
     Dosage: UNK, 2X/DAY
     Route: 065
  24. ACYCLOVIR [Suspect]
     Active Substance: ACYCLOVIR
     Indication: Systemic lupus erythematosus
     Dosage: 400 MILLIGRAM, QD
     Route: 065
  25. ACYCLOVIR [Suspect]
     Active Substance: ACYCLOVIR
     Dosage: 1200 MILLIGRAM, QD
     Route: 065
  26. ACYCLOVIR [Suspect]
     Active Substance: ACYCLOVIR
     Dosage: 400 MILLIGRAM, QD
     Route: 065
  27. ACYCLOVIR [Suspect]
     Active Substance: ACYCLOVIR
     Dosage: 1200 MILLIGRAM, DAILY, 1200 MILLIGRAM, QD
     Route: 065
  28. PENTACARINAT [Suspect]
     Active Substance: PENTAMIDINE ISETHIONATE
     Indication: Systemic lupus erythematosus
     Dates: start: 201904
  29. MOLSIDOMINE [Suspect]
     Active Substance: MOLSIDOMINE
     Indication: Systemic lupus erythematosus
     Dosage: 1 DOSAGE FORM, DAILY (1 DF, QD (8 RET))
     Route: 065
  30. MOLSIDOMINE [Suspect]
     Active Substance: MOLSIDOMINE
     Route: 065
  31. MOLSIDOMINE [Suspect]
     Active Substance: MOLSIDOMINE
     Route: 065
  32. MOLSIDOMINE [Suspect]
     Active Substance: MOLSIDOMINE
     Route: 065
  33. MOLSIDOMINE [Suspect]
     Active Substance: MOLSIDOMINE
     Route: 065
  34. MOLSIDOMINE [Suspect]
     Active Substance: MOLSIDOMINE
     Route: 065
  35. DETRUSITOL [Suspect]
     Active Substance: TOLTERODINE TARTRATE
     Indication: Systemic lupus erythematosus
     Route: 065
  36. DETRUSITOL [Suspect]
     Active Substance: TOLTERODINE TARTRATE
     Route: 065
  37. APIXABAN [Suspect]
     Active Substance: APIXABAN
     Indication: Systemic lupus erythematosus
     Route: 065
  38. LEVOTHYROXINE SODIUM [Suspect]
     Active Substance: LEVOTHYROXINE SODIUM
     Indication: Systemic lupus erythematosus
     Route: 065
  39. ELIQUIS [Suspect]
     Active Substance: APIXABAN
     Indication: Systemic lupus erythematosus
     Route: 065
  40. BENLYSTA [Suspect]
     Active Substance: BELIMUMAB
     Indication: Systemic lupus erythematosus
     Route: 058
     Dates: start: 201708, end: 201904
  41. BENLYSTA [Suspect]
     Active Substance: BELIMUMAB
     Indication: White blood cell count decreased
     Route: 058
     Dates: start: 201711, end: 201812
  42. BENLYSTA [Suspect]
     Active Substance: BELIMUMAB
     Route: 058
     Dates: start: 201806, end: 201807
  43. BENLYSTA [Suspect]
     Active Substance: BELIMUMAB
     Route: 058
  44. MORPHINE SULFATE [Concomitant]
     Active Substance: MORPHINE SULFATE
     Indication: Product used for unknown indication
     Dosage: 4 DOSAGE FORM, DAILY (2 DF, QD (BID 30 RET) )
     Route: 065
  45. MORPHINE SULFATE [Concomitant]
     Active Substance: MORPHINE SULFATE
     Route: 065
  46. HYDROXYCHLOROQUINE [Concomitant]
     Active Substance: HYDROXYCHLOROQUINE
     Indication: Product used for unknown indication
     Dosage: 200 MILLIGRAM, QD
     Route: 065
     Dates: start: 2008
  47. HYDROXYCHLOROQUINE [Concomitant]
     Active Substance: HYDROXYCHLOROQUINE
     Dosage: 200 MILLIGRAM, QD
     Route: 065
     Dates: start: 1994, end: 1997
  48. MCP                                /00041902/ [Concomitant]
     Indication: Product used for unknown indication
     Dosage: 9 DOSAGE FORM, DAILY (3 DF, 3X/DAY,FREQ:.33 D;3 DF, QD ( TID 10))
     Route: 065
  49. NITRENDIPINE [Concomitant]
     Active Substance: NITRENDIPINE
     Indication: Product used for unknown indication
     Route: 065
  50. NITRENDIPINE [Concomitant]
     Active Substance: NITRENDIPINE
     Route: 065
  51. EZETIMIBE [Concomitant]
     Active Substance: EZETIMIBE
     Indication: Product used for unknown indication
     Route: 065
  52. EZETIMIBE [Concomitant]
     Active Substance: EZETIMIBE
     Route: 065
  53. EZETIMIBE [Concomitant]
     Active Substance: EZETIMIBE
     Dosage: 1 DF, 1X/DAY
     Route: 065
  54. ISDN [Concomitant]
     Indication: Product used for unknown indication
     Route: 065
  55. ISDN [Concomitant]
     Route: 065
  56. ISDN [Concomitant]
     Dosage: 2 DOSAGE FORM, DAILY (2 DF, QD (BID20 RET))
     Route: 065
  57. SAB SIMPLEX [Concomitant]
     Indication: Product used for unknown indication
     Dosage: 90 DROP, DAILY (FREQ:.33 D;30 GTT, TID )
     Route: 065
  58. CHOLECALCIFEROL [Concomitant]
     Active Substance: CHOLECALCIFEROL
     Indication: Product used for unknown indication
     Route: 065
  59. CHOLECALCIFEROL [Concomitant]
     Active Substance: CHOLECALCIFEROL
     Dosage: UNK, WEEKLY
     Route: 065
  60. CHOLECALCIFEROL [Concomitant]
     Active Substance: CHOLECALCIFEROL
     Dosage: UNK, WEEKLY
     Route: 065
  61. CHOLECALCIFEROL [Concomitant]
     Active Substance: CHOLECALCIFEROL
     Dosage: 1 DOSAGE FORM, WEEKLY (1 DF, QW ( WE, 20000) ,UNK, WEEKLY)
     Route: 065
  62. UMECLIDINIUM BROMIDE\VILANTEROL TRIFENATATE [Concomitant]
     Active Substance: UMECLIDINIUM BROMIDE\VILANTEROL TRIFENATATE
     Indication: Product used for unknown indication
  63. UMECLIDINIUM BROMIDE\VILANTEROL TRIFENATATE [Concomitant]
     Active Substance: UMECLIDINIUM BROMIDE\VILANTEROL TRIFENATATE
  64. UMECLIDINIUM BROMIDE\VILANTEROL TRIFENATATE [Concomitant]
     Active Substance: UMECLIDINIUM BROMIDE\VILANTEROL TRIFENATATE
  65. LEVOTHYROXINE SODIUM [Concomitant]
     Active Substance: LEVOTHYROXINE SODIUM
     Indication: Product used for unknown indication
     Dosage: 1 DOSAGE FORM, DAILY (1 DF, QD (50) )
     Route: 065
  66. DULOXETINE [Concomitant]
     Active Substance: DULOXETINE
     Indication: Product used for unknown indication
     Dosage: 1 DF, QD (30 (1-0-0), UNK (30, 1X/DAY)
     Route: 065
  67. DULOXETINE [Concomitant]
     Active Substance: DULOXETINE
     Route: 065
  68. LAXATAN M [Concomitant]
     Indication: Product used for unknown indication
     Route: 065

REACTIONS (33)
  - Peritonitis [Fatal]
  - Lymphopenia [Fatal]
  - Sepsis [Fatal]
  - Peritonitis [Fatal]
  - Pneumocystis jirovecii pneumonia [Fatal]
  - Intentional product use issue [Fatal]
  - Anxiety disorder [Unknown]
  - Urinary tract infection [Unknown]
  - Erysipelas [Unknown]
  - Gastritis haemorrhagic [Unknown]
  - Fall [Unknown]
  - Coombs positive haemolytic anaemia [Unknown]
  - Hypertension [Unknown]
  - Gastrooesophageal reflux disease [Unknown]
  - Antinuclear antibody negative [Unknown]
  - Antiphospholipid syndrome [Unknown]
  - Pleuritic pain [Unknown]
  - Colitis ulcerative [Unknown]
  - Leukopenia [Unknown]
  - Hypothyroidism [Unknown]
  - Herpes simplex reactivation [Unknown]
  - Depression [Unknown]
  - Systemic lupus erythematosus [Unknown]
  - Thrombocytopenia [Unknown]
  - Skin disorder [Unknown]
  - Hyperlipidaemia [Unknown]
  - Osteonecrosis [Unknown]
  - Pancreatitis acute [Unknown]
  - Complex regional pain syndrome [Unknown]
  - Drug hypersensitivity [Unknown]
  - Off label use [Unknown]
  - Product use in unapproved indication [Unknown]
  - Off label use [Unknown]

NARRATIVE: CASE EVENT DATE: 19900101
